FAERS Safety Report 4421072-4 (Version None)
Quarter: 2004Q3

REPORT INFORMATION
  Report Type: 
  Country: None (occurrence: None)
  Receive Date: 20040803
  Receipt Date: 20040721
  Transmission Date: 20050211
  Serious: Yes (Hospitalization, Other)
  Sender: FDA-Public Use
  Company Number: 2004032620

PATIENT
  Age: 33 Year
  Sex: Male

DRUGS (2)
  1. VIAGRA [Suspect]
     Indication: ERECTILE DYSFUNCTION
     Dosage: AS NEEDED, ORAL
     Route: 048
     Dates: start: 20040401, end: 20040401
  2. ALL OTHER THERAPEUTIC PRODUCTS (ALL OTHER THERAPEUTIC PRODUCTS) [Suspect]
     Indication: FATIGUE
     Dosage: ORAL
     Route: 048
     Dates: start: 20040426, end: 20040426

REACTIONS (15)
  - AORTIC DISORDER [None]
  - BLOOD PRESSURE SYSTOLIC INCREASED [None]
  - CARDIAC MURMUR [None]
  - CHEST DISCOMFORT [None]
  - CHEST PAIN [None]
  - DRUG INTERACTION [None]
  - DYSPNOEA [None]
  - ECHOCARDIOGRAM ABNORMAL [None]
  - FATIGUE [None]
  - MEDICATION ERROR [None]
  - PALPITATIONS [None]
  - SINUS TACHYCARDIA [None]
  - SOMNOLENCE [None]
  - TREMOR [None]
  - VASODILATATION [None]
